FAERS Safety Report 8575757-9 (Version None)
Quarter: 2012Q3

REPORT INFORMATION
  Report Type: 
  Country: None (occurrence: None)
  Receive Date: 20120807
  Receipt Date: 20120806
  Transmission Date: 20120928
  Serious: Yes (Other)
  Sender: FDA-Public Use
  Company Number: PHHY2011CA55156

PATIENT
  Sex: Male

DRUGS (1)
  1. SANDOSTATIN LAR [Suspect]
     Indication: CARCINOID TUMOUR
     Dosage: 30 MG, EVERY 4 WEEKS
     Route: 030
     Dates: start: 20101101

REACTIONS (8)
  - DIZZINESS [None]
  - SWELLING [None]
  - DIARRHOEA [None]
  - PAIN [None]
  - MUSCULOSKELETAL DISCOMFORT [None]
  - NIGHT SWEATS [None]
  - BALANCE DISORDER [None]
  - GAIT DISTURBANCE [None]
